FAERS Safety Report 13103912 (Version 1)
Quarter: 2017Q1

REPORT INFORMATION
  Report Type: Other
  Country: IN (occurrence: IN)
  Receive Date: 20170111
  Receipt Date: 20170111
  Transmission Date: 20170428
  Serious: Yes (Death, Hospitalization)
  Sender: FDA-Public Use
  Company Number: IN-GAVIS PHARMACEUTICALS, LLC-2017-00131

PATIENT
  Age: 32 Year
  Sex: Female

DRUGS (2)
  1. VORICONAZOLE. [Suspect]
     Active Substance: VORICONAZOLE
     Indication: PROPHYLAXIS
     Route: 065
  2. VALACICLOVIR [Concomitant]
     Active Substance: VALACYCLOVIR HYDROCHLORIDE
     Indication: PROPHYLAXIS
     Route: 065

REACTIONS (2)
  - Mucormycosis [Fatal]
  - Hepatic infection fungal [Fatal]
